FAERS Safety Report 5943358-4 (Version None)
Quarter: 2008Q4

REPORT INFORMATION
  Report Type: 
  Country: None (occurrence: None)
  Receive Date: 20081104
  Receipt Date: 20081023
  Transmission Date: 20090506
  Serious: Yes (Hospitalization, Other)
  Sender: FDA-Public Use
  Company Number: JPI-P-005231

PATIENT
  Age: 52 Year
  Sex: Male

DRUGS (2)
  1. LUVOX [Suspect]
     Indication: DEPRESSION
     Dosage: 100 MG (100 MG, 1 IN 1 D), ORAL
     Route: 048
     Dates: start: 20080704, end: 20080926
  2. FLUNITRAZEPAM (FLUNITRAZEPAM) [Concomitant]

REACTIONS (2)
  - DIALYSIS [None]
  - RHABDOMYOLYSIS [None]
